FAERS Safety Report 19252641 (Version 2)
Quarter: 2025Q4

REPORT INFORMATION
  Report Type: Report from Study
  Country: EU (occurrence: EU)
  Receive Date: 20210512
  Receipt Date: 20251205
  Transmission Date: 20260117
  Serious: Yes (Disabling, Other)
  Sender: RANBAXY
  Company Number: EU-SUN PHARMACEUTICAL INDUSTRIES LTD-2021R1-295646

PATIENT
  Age: 44 Year
  Sex: Male

DRUGS (7)
  1. ALPRAZOLAM [Suspect]
     Active Substance: ALPRAZOLAM
     Indication: Product used for unknown indication
     Dosage: 12 TABLETS/DAY
     Route: 065
  2. PREGABALIN [Suspect]
     Active Substance: PREGABALIN
     Indication: Product used for unknown indication
     Dosage: 18 CAPSULES PER DAY
     Route: 065
  3. PREGABALIN [Suspect]
     Active Substance: PREGABALIN
     Dosage: UNK
     Route: 065
  4. ACETAMINOPHEN AND CODEINE [Suspect]
     Active Substance: ACETAMINOPHEN\CODEINE PHOSPHATE
     Indication: Product used for unknown indication
     Dosage: 24 TABLETS PER DAY
     Route: 065
  5. TETRAZEPAM [Suspect]
     Active Substance: TETRAZEPAM
     Indication: Product used for unknown indication
     Dosage: 18 TABLETS PER DAY
     Route: 065
  6. ZOLPIDEM [Suspect]
     Active Substance: ZOLPIDEM TARTRATE
     Indication: Product used for unknown indication
     Dosage: 30 TABLETS PER DAY
     Route: 065
  7. ARIPIPRAZOLE [Concomitant]
     Active Substance: ARIPIPRAZOLE
     Indication: Product used for unknown indication
     Dosage: 12 TABLETS PER DAY
     Route: 065

REACTIONS (7)
  - Drug abuse [Unknown]
  - Deafness [Unknown]
  - Dependence [Unknown]
  - Alopecia [Unknown]
  - Somnolence [Unknown]
  - Dizziness [Unknown]
  - Intentional overdose [Unknown]

NARRATIVE: CASE EVENT DATE: 20120101
